FAERS Safety Report 7403975 (Version 2)
Quarter: 2018Q1

REPORT INFORMATION
  Report Type: Spontaneous
  Country: DE (occurrence: DE)
  Receive Date: 20100528
  Receipt Date: 20180315
  Transmission Date: 20180509
  Serious: Yes (Other)
  Sender: FDA-Public Use
  Company Number: DE-BAUSCH-2010BL002568

PATIENT
  Age: 17 Year
  Sex: Female

DRUGS (11)
  1. AIROMIR INHALER [Suspect]
     Active Substance: ALBUTEROL SULFATE
     Dosage: INTRAVENOUS INFUSION
     Route: 042
  2. AIROMIR INHALER [Suspect]
     Active Substance: ALBUTEROL SULFATE
     Indication: ASTHMA
     Dosage: AS NEEDED
     Route: 055
  3. THEOPHYLLINE [Suspect]
     Active Substance: THEOPHYLLINE ANHYDROUS
     Indication: ASTHMA
     Dosage: INTRAVENOUS INFUSION
     Route: 042
  4. THEOPHYLLINE [Suspect]
     Active Substance: THEOPHYLLINE ANHYDROUS
     Dosage: INTRAVENOUS INFUSION
     Route: 042
  5. FORMOTEROL [Concomitant]
     Active Substance: FORMOTEROL
     Indication: ASTHMA
     Route: 049
  6. AIROMIR INHALER [Suspect]
     Active Substance: ALBUTEROL SULFATE
     Dosage: INTRAVENOUS INFUSION
     Route: 042
  7. THEOPHYLLINE [Suspect]
     Active Substance: THEOPHYLLINE ANHYDROUS
     Route: 048
  8. BUDESONIDE. [Concomitant]
     Active Substance: BUDESONIDE
     Indication: ASTHMA
     Dosage: DRY POWDER INHALER
     Route: 049
  9. MONTELUKAST [Concomitant]
     Active Substance: MONTELUKAST SODIUM
     Indication: ASTHMA
  10. AIROMIR INHALER [Suspect]
     Active Substance: ALBUTEROL SULFATE
     Route: 055
  11. PREDNISOLONE. [Concomitant]
     Active Substance: PREDNISOLONE
     Indication: PRODUCT USED FOR UNKNOWN INDICATION
     Route: 042

REACTIONS (4)
  - Hyperlactacidaemia [Recovered/Resolved]
  - Condition aggravated [Recovered/Resolved]
  - Blood glucose increased [Recovered/Resolved]
  - Dyspnoea [Recovered/Resolved]
